FAERS Safety Report 11717545 (Version 1)
Quarter: 2015Q4

REPORT INFORMATION
  Report Type: Spontaneous
  Country: US (occurrence: US)
  Receive Date: 20151110
  Receipt Date: 20151110
  Transmission Date: 20160304
  Serious: No
  Sender: FDA-Public Use
  Company Number: US-TEVA-588028USA

PATIENT
  Age: 55 Year
  Sex: Female
  Weight: 45.85 kg

DRUGS (9)
  1. TRAMADOL. [Concomitant]
     Active Substance: TRAMADOL
  2. CELECOXIB. [Suspect]
     Active Substance: CELECOXIB
     Indication: ARTHRITIS
  3. PANTOPRAZOLE [Concomitant]
     Active Substance: PANTOPRAZOLE SODIUM
     Indication: GASTROOESOPHAGEAL REFLUX DISEASE
     Dosage: 40 MILLIGRAM DAILY;
  4. PANTOPRAZOLE [Concomitant]
     Active Substance: PANTOPRAZOLE SODIUM
     Indication: GASTROOESOPHAGEAL REFLUX DISEASE
  5. CELECOXIB. [Suspect]
     Active Substance: CELECOXIB
     Indication: NERVE INJURY
     Route: 048
     Dates: start: 20141215, end: 20150303
  6. DULOXETINE DR [Concomitant]
     Active Substance: DULOXETINE
     Indication: FIBROMYALGIA
     Route: 048
  7. PANTOPRAZOLE [Concomitant]
     Active Substance: PANTOPRAZOLE SODIUM
     Indication: HIATUS HERNIA
  8. ALPRAZOLAM. [Concomitant]
     Active Substance: ALPRAZOLAM
     Dosage: 6 MILLIGRAM DAILY;
  9. PORCINE [Concomitant]
     Dosage: 45 MILLIGRAM DAILY;
     Route: 048

REACTIONS (8)
  - Drug ineffective [Not Recovered/Not Resolved]
  - Arthralgia [Not Recovered/Not Resolved]
  - Product substitution issue [Unknown]
  - Panic attack [Unknown]
  - Weight decreased [Unknown]
  - Erythema [Not Recovered/Not Resolved]
  - Abdominal discomfort [Recovered/Resolved]
  - Drug hypersensitivity [Unknown]

NARRATIVE: CASE EVENT DATE: 20141215
